FAERS Safety Report 8421983-9 (Version None)
Quarter: 2012Q2

REPORT INFORMATION
  Report Type: 
  Country: None (occurrence: None)
  Receive Date: 20120605
  Receipt Date: 20120605
  Transmission Date: 20120825
  Serious: No
  Sender: FDA-Public Use
  Company Number: None

PATIENT
  Sex: Female
  Weight: 62.5964 kg

DRUGS (1)
  1. BRILINTA [Suspect]
     Indication: CARDIOVASCULAR DISORDER
     Dosage: 90 MG TWICE A DAY
     Dates: start: 20111219

REACTIONS (2)
  - DIPLOPIA [None]
  - INCREASED TENDENCY TO BRUISE [None]
